FAERS Safety Report 18221042 (Version 1)
Quarter: 2020Q3

REPORT INFORMATION
  Report Type: Spontaneous
  Country: DE (occurrence: DE)
  Receive Date: 20200902
  Receipt Date: 20200902
  Transmission Date: 20201103
  Serious: Yes (Death, Hospitalization, Other)
  Sender: FDA-Public Use
  Company Number: DE-AUROBINDO-AUR-APL-2018-011764

PATIENT
  Age: 48 Year
  Sex: Female

DRUGS (5)
  1. FLUOROURACIL. [Suspect]
     Active Substance: FLUOROURACIL
     Indication: APPENDIX CANCER
     Dosage: 500 MILLIGRAM/SQ. METER
     Route: 042
  2. OXALIPLATIN. [Suspect]
     Active Substance: OXALIPLATIN
     Dosage: 300 MILLIGRAM/SQ. METER
     Route: 065
     Dates: start: 2016
  3. FLUOROURACIL. [Suspect]
     Active Substance: FLUOROURACIL
     Indication: METASTASIS
  4. CALCIUM FOLINATE [Suspect]
     Active Substance: LEUCOVORIN CALCIUM
     Indication: METASTASIS
     Dosage: 20 MILLIGRAM/SQ. METER
     Route: 042
  5. OXALIPLATIN. [Suspect]
     Active Substance: OXALIPLATIN
     Indication: METASTASIS
     Dosage: ()CYCLICAL
     Route: 042
     Dates: start: 2015

REACTIONS (10)
  - Right ventricular failure [Fatal]
  - Polyneuropathy [Unknown]
  - Toxicity to various agents [Unknown]
  - Pulmonary hypertension [Fatal]
  - Interstitial lung disease [Unknown]
  - Pulmonary oedema [Unknown]
  - Dyspnoea [Unknown]
  - Fatigue [Unknown]
  - Condition aggravated [Unknown]
  - Sinus tachycardia [Unknown]
